FAERS Safety Report 7631626-X (Version None)
Quarter: 2011Q3

REPORT INFORMATION
  Report Type: 
  Country: None (occurrence: None)
  Receive Date: 20110725
  Receipt Date: 20110127
  Transmission Date: 20111222
  Serious: No
  Sender: FDA-Public Use
  Company Number: US-BRISTOL-MYERS SQUIBB COMPANY-15513914

PATIENT
  Age: 57 Year
  Sex: Male

DRUGS (4)
  1. POTASSIUM [Concomitant]
  2. COUMADIN [Suspect]
  3. COREG [Concomitant]
  4. LASIX [Concomitant]

REACTIONS (2)
  - INTERNATIONAL NORMALISED RATIO DECREASED [None]
  - FATIGUE [None]
